FAERS Safety Report 4529548-6 (Version None)
Quarter: 2004Q4

REPORT INFORMATION
  Report Type: 
  Country: None (occurrence: None)
  Receive Date: 20041216
  Receipt Date: 20041118
  Transmission Date: 20050328
  Serious: Yes (Hospitalization)
  Sender: FDA-Public Use
  Company Number: GB-MERCK-0411GBR00177

PATIENT
  Age: 75 Year
  Sex: Female

DRUGS (3)
  1. ZOCOR [Suspect]
     Route: 048
     Dates: start: 20041112, end: 20041115
  2. ASPIRIN [Concomitant]
     Route: 065
  3. RAMIPRIL [Concomitant]
     Route: 065

REACTIONS (2)
  - NECK PAIN [None]
  - PAIN IN EXTREMITY [None]
